FAERS Safety Report 5119670-8 (Version None)
Quarter: 2006Q3

REPORT INFORMATION
  Report Type: 
  Country: None (occurrence: None)
  Receive Date: 20060929
  Receipt Date: 20060921
  Transmission Date: 20061208
  Serious: Yes (Other)
  Sender: FDA-Public Use
  Company Number: GXKR2006FR05588

PATIENT
  Age: 69 Year
  Sex: Female

DRUGS (13)
  1. RIFAMPICIN [Suspect]
     Indication: SEPSIS
     Dosage: 900 MG, BID, ORAL
     Route: 048
     Dates: start: 20050101
  2. SINTROM [Suspect]
     Indication: PHLEBITIS
     Dosage: 4 2 MG
     Dates: start: 20050118, end: 20050129
  3. PREVISCAN (FLUINDIONE) [Suspect]
     Indication: PHLEBITIS
     Dosage: 20 MG
     Dates: start: 20050112, end: 20050117
  4. LACTEOL (LACTOBACILLUS ACIDOPHILUS) [Concomitant]
  5. OMEPRAZOLE [Concomitant]
  6. DIAMICRON (GLICLAZIDE) [Concomitant]
  7. DILTIAZEM HYDROCHLORIDE [Concomitant]
  8. PRAVASTATIN [Concomitant]
  9. STILNOX /FRA/ (ZOLPIDEM) [Concomitant]
  10. ACETAMINOPHEN [Concomitant]
  11. CLAMOXYL /NET/ (AMOXICILLIN TRIHYDRATE) [Concomitant]
  12. GENTAMICIN SULFATE [Concomitant]
  13. FRAXODI (NADROPARIN CALCIUM) [Concomitant]

REACTIONS (5)
  - DRUG INTERACTION [None]
  - HYPERCOAGULATION [None]
  - INTERNATIONAL NORMALISED RATIO INCREASED [None]
  - PROTHROMBIN TIME SHORTENED [None]
  - THERAPY NON-RESPONDER [None]
